FAERS Safety Report 18517433 (Version 3)
Quarter: 2021Q4

REPORT INFORMATION
  Report Type: Report from Study
  Country: JP (occurrence: JP)
  Receive Date: 20201118
  Receipt Date: 20211116
  Transmission Date: 20220303
  Serious: Yes (Hospitalization)
  Sender: FDA-Public Use
  Company Number: JP-CELGENE-JPN-20201102641

PATIENT
  Age: 77 Year
  Sex: Female
  Weight: 47.9 kg

DRUGS (8)
  1. ISTODAX [Suspect]
     Active Substance: ROMIDEPSIN
     Indication: Angioimmunoblastic T-cell lymphoma
     Route: 041
     Dates: start: 20200826, end: 20200826
  2. ISTODAX [Suspect]
     Active Substance: ROMIDEPSIN
     Route: 041
     Dates: start: 20200910, end: 20200910
  3. ISTODAX [Suspect]
     Active Substance: ROMIDEPSIN
     Route: 041
     Dates: start: 20200922, end: 20200922
  4. ACYCLOVIR SODIUM [Concomitant]
     Active Substance: ACYCLOVIR SODIUM
     Indication: Prophylaxis
     Dosage: UNKNOWN
     Route: 048
  5. ATOVAQUONE [Concomitant]
     Active Substance: ATOVAQUONE
     Indication: Prophylaxis
     Dosage: UNKNOWN
     Route: 048
  6. LEVOFLOXACIN [Concomitant]
     Active Substance: LEVOFLOXACIN
     Indication: Prophylaxis
     Dosage: UNKNOWN
     Route: 048
  7. FUROSEMIDE [Concomitant]
     Active Substance: FUROSEMIDE
     Indication: Product used for unknown indication
     Dosage: UNKNOWN
     Route: 065
  8. FUROSEMIDE [Concomitant]
     Active Substance: FUROSEMIDE
     Indication: Cardiac failure
     Dosage: INCREASED DOSE
     Route: 065
     Dates: start: 20200828

REACTIONS (3)
  - Cardiac failure [Recovering/Resolving]
  - Platelet count decreased [Not Recovered/Not Resolved]
  - Angioimmunoblastic T-cell lymphoma [Unknown]

NARRATIVE: CASE EVENT DATE: 20200828
